FAERS Safety Report 7824184-8 (Version None)
Quarter: 2011Q4

REPORT INFORMATION
  Report Type: 
  Country: None (occurrence: None)
  Receive Date: 20111019
  Receipt Date: 20111010
  Transmission Date: 20120403
  Serious: Yes (Other)
  Sender: FDA-Public Use
  Company Number: FR-CELGENEUS-056-21880-11101204

PATIENT
  Age: 67 Year
  Sex: Female

DRUGS (2)
  1. REVLIMID [Suspect]
     Route: 048
     Dates: start: 20071101, end: 20090101
  2. DEXAMETHASONE [Concomitant]
     Route: 065
     Dates: start: 20071101, end: 20090101

REACTIONS (1)
  - ENDOMETRIAL CANCER [None]
